FAERS Safety Report 5216811-9 (Version None)
Quarter: 2007Q1

REPORT INFORMATION
  Report Type: 
  Country: None (occurrence: None)
  Receive Date: 20070119
  Receipt Date: 20070104
  Transmission Date: 20070707
  Serious: Yes (Hospitalization)
  Sender: FDA-Public Use
  Company Number: APP200700001

PATIENT
  Age: 28 Year
  Sex: Female
  Weight: 65.7716 kg

DRUGS (6)
  1. PROGESTERONE INJ [Suspect]
     Indication: IN VITRO FERTILISATION
     Dosage: 50 MG (50 MG, 1 IN 1 D), INTRAMUSCULAR
     Route: 030
     Dates: start: 20060821, end: 20060921
  2. ESTRADIOL PATCH [Concomitant]
  3. APAP (PARACETAMOL) [Concomitant]
  4. PRENATAL VITAMINS [Concomitant]
  5. AMOXICILLIN [Concomitant]
  6. AZITHROMYCIN [Concomitant]

REACTIONS (4)
  - EOSINOPHILIC PNEUMONIA [None]
  - HYPERSENSITIVITY [None]
  - REACTION TO DRUG EXCIPIENTS [None]
  - RESPIRATORY ALKALOSIS [None]
